FAERS Safety Report 13573681 (Version 1)
Quarter: 2017Q2

REPORT INFORMATION
  Report Type: Spontaneous
  Country: CA (occurrence: CA)
  Receive Date: 20170523
  Receipt Date: 20170523
  Transmission Date: 20170830
  Serious: Yes (Hospitalization)
  Sender: FDA-Public Use
  Company Number: CA-PFIZER INC-2017219732

PATIENT
  Age: 70 Year
  Sex: Female
  Weight: 69.5 kg

DRUGS (9)
  1. ARTHROTEC [Suspect]
     Active Substance: DICLOFENAC SODIUM\MISOPROSTOL
     Indication: MUSCULOSKELETAL PAIN
  2. ARTHROTEC [Suspect]
     Active Substance: DICLOFENAC SODIUM\MISOPROSTOL
     Indication: CHEST PAIN
  3. TYLENOL WITH CODEINE [Concomitant]
     Active Substance: ACETAMINOPHEN\CODEINE PHOSPHATE
     Dosage: UNK UNK, AS NEEDED (ON AND OFF)
  4. ARTHROTEC [Suspect]
     Active Substance: DICLOFENAC SODIUM\MISOPROSTOL
     Indication: ARTHRITIS
  5. SYNTHROID [Concomitant]
     Active Substance: LEVOTHYROXINE SODIUM
     Dosage: UNK
  6. VASOTEC [Concomitant]
     Active Substance: ENALAPRIL MALEATE
     Dosage: UNK
  7. ARTHROTEC [Suspect]
     Active Substance: DICLOFENAC SODIUM\MISOPROSTOL
     Indication: BACK PAIN
  8. ARTHROTEC [Suspect]
     Active Substance: DICLOFENAC SODIUM\MISOPROSTOL
     Indication: PAIN IN EXTREMITY
     Dosage: 1 DF (200 UG/50 MG), 3X/DAY
     Route: 048
     Dates: start: 19980723, end: 19980806
  9. ISOPTIN [Concomitant]
     Active Substance: VERAPAMIL HYDROCHLORIDE
     Indication: HYPERTENSION
     Dosage: 120 MG, 1X/DAY

REACTIONS (19)
  - Acute pulmonary oedema [Unknown]
  - White blood cell count increased [Unknown]
  - Hepatitis [Unknown]
  - Pleural effusion [Unknown]
  - Urinary tract infection [Unknown]
  - Pneumonia [Recovering/Resolving]
  - Pyrexia [Unknown]
  - Deep vein thrombosis [Unknown]
  - Splenomegaly [Unknown]
  - Oedema peripheral [Not Recovered/Not Resolved]
  - Relapsing fever [Unknown]
  - Jaundice [Unknown]
  - Myalgia [Unknown]
  - Cardiac failure congestive [Unknown]
  - Systemic lupus erythematosus [Unknown]
  - Mass [Unknown]
  - Anaemia [Unknown]
  - Pericardial effusion [Unknown]
  - Atrial fibrillation [Unknown]

NARRATIVE: CASE EVENT DATE: 1998
